FAERS Safety Report 23354901 (Version 2)
Quarter: 2024Q1

REPORT INFORMATION
  Report Type: Spontaneous
  Country: FR (occurrence: FR)
  Receive Date: 20240101
  Receipt Date: 20240120
  Transmission Date: 20240409
  Serious: Yes (Death, Life-Threatening, Other)
  Sender: FDA-Public Use
  Company Number: FR-AFSSAPS-TO2023002222

PATIENT
  Age: 35 Year
  Sex: Male
  Weight: 87 kg

DRUGS (6)
  1. ARIPIPRAZOLE [Suspect]
     Active Substance: ARIPIPRAZOLE
     Indication: Schizophrenia
     Dosage: 20 MILLIGRAM, ONCE A DAY(10 MG 2 FOIS PAR JOUR)
     Route: 048
     Dates: end: 20231130
  2. CLOZAPINE [Suspect]
     Active Substance: CLOZAPINE
     Indication: Schizophrenia
     Dosage: 500 MILLIGRAM, ONCE A DAY(1 MATIN 1 MIDI 3 NUIT)
     Route: 048
     Dates: start: 20231106, end: 20231130
  3. PROPRANOLOL HYDROCHLORIDE [Suspect]
     Active Substance: PROPRANOLOL HYDROCHLORIDE
     Indication: Schizophrenia
     Dosage: 40 MILLIGRAM, ONCE A DAY(0.5CP LE MATIN ET LE SOIR)
     Route: 048
     Dates: end: 20231130
  4. ANAFRANIL [Suspect]
     Active Substance: CLOMIPRAMINE HYDROCHLORIDE
     Indication: Product used for unknown indication
     Dosage: 50 MILLIGRAM, ONCE A DAY(2 CP LE MATIN)
     Route: 048
     Dates: end: 20231130
  5. CYAMEMAZINE [Suspect]
     Active Substance: CYAMEMAZINE
     Indication: Schizophrenia
     Dosage: 125 GTT DROPS, ONCE A DAY(50 GOUTTES LE MATIN, 75 GOUTTES LE MIDI  )
     Route: 048
     Dates: end: 20231130
  6. ANAFRANIL [Suspect]
     Active Substance: CLOMIPRAMINE HYDROCHLORIDE
     Indication: Product used for unknown indication
     Dosage: 75 MILLIGRAM, ONCE A DAY(1 CP LE MIDI)
     Route: 048
     Dates: end: 20231130

REACTIONS (2)
  - Death [Fatal]
  - Large intestinal obstruction [Fatal]

NARRATIVE: CASE EVENT DATE: 20231130
